FAERS Safety Report 18623467 (Version 2)
Quarter: 2021Q1

REPORT INFORMATION
  Report Type: Spontaneous
  Country: US (occurrence: US)
  Receive Date: 20201216
  Receipt Date: 20210126
  Transmission Date: 20210419
  Serious: No
  Sender: FDA-Public Use
  Company Number: US-BIOMARINAP-US-2020-133558

PATIENT
  Age: 20 Year
  Sex: Female
  Weight: 59 kg

DRUGS (1)
  1. VIMIZIM [Suspect]
     Active Substance: ELOSULFASE ALFA
     Indication: PRODUCT USED FOR UNKNOWN INDICATION
     Dosage: UNK, QW
     Route: 065
     Dates: start: 20150303

REACTIONS (3)
  - Depression [Recovering/Resolving]
  - Anxiety [Recovering/Resolving]
  - Pregnancy [Unknown]

NARRATIVE: CASE EVENT DATE: 2020
